FAERS Safety Report 9706035 (Version 2)
Quarter: 2013Q4

REPORT INFORMATION
  Report Type: Spontaneous
  Country: GB (occurrence: GB)
  Receive Date: 20131122
  Receipt Date: 20131122
  Transmission Date: 20140711
  Serious: Yes (Hospitalization, Congenital Anomaly, Other)
  Sender: FDA-Public Use
  Company Number: GB-ASTRAZENECA-2013SE83088

PATIENT
  Age: 9 Month
  Sex: 0
  Weight: 7.9 kg

DRUGS (3)
  1. SYNAGIS [Suspect]
     Indication: CARDIAC OPERATION
     Route: 030
     Dates: start: 2013
  2. NEBULISER (VENTOLIN+ATROVENT+SALINE) [Concomitant]
  3. VENTOLIN INHALER [Concomitant]

REACTIONS (8)
  - Viral rash [Recovered/Resolved]
  - Dyspnoea [Unknown]
  - Secretion discharge [Unknown]
  - Ventricular septal defect [Unknown]
  - Congenital pulmonary artery anomaly [Unknown]
  - Congenital pulmonary valve atresia [Unknown]
  - Respiratory syncytial virus bronchiolitis [Recovered/Resolved]
  - Respiratory syncytial virus test positive [Unknown]
